FAERS Safety Report 23422380 (Version 1)
Quarter: 2024Q1

REPORT INFORMATION
  Report Type: Spontaneous
  Country: US (occurrence: None)
  Receive Date: 20240118
  Receipt Date: 20240118
  Transmission Date: 20240410
  Serious: Yes (Life-Threatening)
  Sender: FDA-Public Use
  Company Number: None

PATIENT
  Age: 57 Year
  Sex: Male
  Weight: 111.6 kg

DRUGS (1)
  1. THYMOGLOBULIN [Suspect]
     Active Substance: LAPINE T-LYMPHOCYTE IMMUNE GLOBULIN
     Indication: Renal transplant
     Dosage: FREQUENCY : ONCE;?
     Route: 042
     Dates: start: 20231210, end: 20231211

REACTIONS (6)
  - Dizziness [None]
  - Unresponsive to stimuli [None]
  - Pulse absent [None]
  - Cardio-respiratory arrest [None]
  - Blood glucose decreased [None]
  - Heart rate increased [None]

NARRATIVE: CASE EVENT DATE: 20231211
